FAERS Safety Report 4507752-0 (Version None)
Quarter: 2004Q4

REPORT INFORMATION
  Report Type: 
  Country: None (occurrence: None)
  Receive Date: 20041123
  Receipt Date: 20041111
  Transmission Date: 20050328
  Serious: Yes (Other)
  Sender: FDA-Public Use
  Company Number: 200413472JP

PATIENT
  Age: 31 Year
  Sex: Male

DRUGS (6)
  1. KETEK [Suspect]
     Indication: BACTERIAL INFECTION
     Route: 048
     Dates: start: 20040824, end: 20040828
  2. KETEK [Suspect]
     Indication: TONSILLITIS
     Route: 048
     Dates: start: 20040824, end: 20040828
  3. LOXONIN [Concomitant]
  4. TRANSAMIN [Concomitant]
  5. MUCOSOLVAN [Concomitant]
  6. KYORIN AP 2 [Concomitant]

REACTIONS (2)
  - CONVULSION [None]
  - DEPRESSED LEVEL OF CONSCIOUSNESS [None]
